FAERS Safety Report 6506338-6 (Version None)
Quarter: 2009Q4

REPORT INFORMATION
  Report Type: 
  Country: None (occurrence: None)
  Receive Date: 20091218
  Receipt Date: 20091208
  Transmission Date: 20100525
  Serious: No
  Sender: FDA-Public Use
  Company Number: US-ELI_LILLY_AND_COMPANY-US200912002369

PATIENT
  Sex: Female

DRUGS (16)
  1. CYMBALTA [Suspect]
     Indication: DEPRESSION
     Dosage: 60 MG, 2/D
     Dates: start: 20060125, end: 20090404
  2. SYNTHROID [Concomitant]
  3. FOLIC ACID [Concomitant]
  4. ALTACE [Concomitant]
  5. NEURONTIN [Concomitant]
  6. PRAVACHOL [Concomitant]
  7. COUMADIN [Concomitant]
  8. LUNESTA [Concomitant]
  9. DARVOCET-N 100 [Concomitant]
  10. DURAGESIC-100 [Concomitant]
  11. SOMA [Concomitant]
  12. XANAX                                   /SCH/ [Concomitant]
  13. FOSAMAX [Concomitant]
  14. CITRACAL [Concomitant]
  15. TRILEPTAL [Concomitant]
  16. ASPIRIN [Concomitant]

REACTIONS (2)
  - GAMMA-GLUTAMYLTRANSFERASE INCREASED [None]
  - HEPATIC ENZYME INCREASED [None]
